FAERS Safety Report 20530590 (Version 2)
Quarter: 2022Q1

REPORT INFORMATION
  Report Type: Report from Study
  Country: US (occurrence: US)
  Receive Date: 20220301
  Receipt Date: 20220323
  Transmission Date: 20220423
  Serious: Yes (Other)
  Sender: FDA-Public Use
  Company Number: US-ABBVIE-22K-163-4294239-00

PATIENT
  Sex: Female

DRUGS (2)
  1. DUOPA [Suspect]
     Active Substance: CARBIDOPA\LEVODOPA
     Indication: Parkinson^s disease
     Route: 050
     Dates: start: 20220127
  2. DUOPA [Suspect]
     Active Substance: CARBIDOPA\LEVODOPA

REACTIONS (9)
  - Weight decreased [Not Recovered/Not Resolved]
  - Medical device site rash [Recovered/Resolved]
  - Hypophagia [Not Recovered/Not Resolved]
  - Device use error [Unknown]
  - Asthenia [Unknown]
  - Hypophagia [Unknown]
  - Fluid intake reduced [Unknown]
  - Decreased appetite [Not Recovered/Not Resolved]
  - Parkinson^s disease [Unknown]

NARRATIVE: CASE EVENT DATE: 20220101
